FAERS Safety Report 20587824 (Version 2)
Quarter: 2023Q1

REPORT INFORMATION
  Report Type: Spontaneous
  Country: US (occurrence: US)
  Receive Date: 20220314
  Receipt Date: 20230123
  Transmission Date: 20230418
  Serious: Yes (Other)
  Sender: FDA-Public Use
  Company Number: US-NOVARTISTESTPH-NVSC2022US057256

PATIENT
  Age: 78 Year
  Sex: Male

DRUGS (1)
  1. BEOVU [Suspect]
     Active Substance: BROLUCIZUMAB-DBLL
     Indication: Neovascular age-related macular degeneration
     Dosage: UNK
     Route: 065
     Dates: start: 20200123

REACTIONS (11)
  - Retinal vascular occlusion [Unknown]
  - Retinal vasculitis [Unknown]
  - Vitritis [Unknown]
  - Retinal artery occlusion [Unknown]
  - Uveitis [Unknown]
  - Eye injury [Unknown]
  - Emotional distress [Unknown]
  - Deformity [Unknown]
  - Anxiety [Unknown]
  - Anhedonia [Unknown]
  - Eye pain [Unknown]

NARRATIVE: CASE EVENT DATE: 20200301
